FAERS Safety Report 20581072 (Version 4)
Quarter: 2025Q4

REPORT INFORMATION
  Report Type: Spontaneous
  Country: US (occurrence: US)
  Receive Date: 20220311
  Receipt Date: 20251013
  Transmission Date: 20260117
  Serious: No
  Sender: BIOGEN
  Company Number: US-BIOGEN-2018BI00658007

PATIENT
  Sex: Male

DRUGS (10)
  1. PLEGRIDY [Suspect]
     Active Substance: PEGINTERFERON BETA-1A
     Indication: Multiple sclerosis
     Dosage: INJECT 125MCG?SUBCUTANEOUSLY?EVERY 2 WEEKS
     Route: 050
     Dates: start: 20181013, end: 202507
  2. CONCERTA [Suspect]
     Active Substance: METHYLPHENIDATE HYDROCHLORIDE
     Indication: Product used for unknown indication
     Route: 050
     Dates: start: 2021, end: 2021
  3. TIZANIDINE HYDROCHLORIDE [Concomitant]
     Active Substance: TIZANIDINE HYDROCHLORIDE
     Route: 050
  4. MELOXICAM [Concomitant]
     Active Substance: MELOXICAM
     Route: 050
  5. MODAFINIL [Concomitant]
     Active Substance: MODAFINIL
     Route: 050
  6. VITAMIN D3 [Concomitant]
     Active Substance: CHOLECALCIFEROL
     Route: 050
  7. LYRICA [Concomitant]
     Active Substance: PREGABALIN
     Route: 050
  8. BACLOFEN [Concomitant]
     Active Substance: BACLOFEN
     Route: 050
  9. CYMBALTA [Concomitant]
     Active Substance: DULOXETINE HYDROCHLORIDE
     Route: 050
  10. ACETAMINOPHEN\HYDROCODONE [Concomitant]
     Active Substance: ACETAMINOPHEN\HYDROCODONE
     Route: 050

REACTIONS (11)
  - Mental impairment [Not Recovered/Not Resolved]
  - Paraesthesia [Unknown]
  - Band sensation [Unknown]
  - Multiple sclerosis relapse [Recovered/Resolved]
  - Fatigue [Recovered/Resolved]
  - Bone pain [Recovered/Resolved]
  - Pain [Not Recovered/Not Resolved]
  - Injection site reaction [Unknown]
  - Injection site pain [Unknown]
  - Pyrexia [Recovered/Resolved]
  - Multiple sclerosis [Unknown]

NARRATIVE: CASE EVENT DATE: 20200101
